FAERS Safety Report 21298333 (Version 1)
Quarter: 2022Q3

REPORT INFORMATION
  Report Type: Spontaneous
  Country: US (occurrence: None)
  Receive Date: 20220902
  Receipt Date: 20220902
  Transmission Date: 20221026
  Serious: Yes (Disabling)
  Sender: FDA-Public Use
  Company Number: None

PATIENT
  Age: 68 Year
  Sex: Male
  Weight: 94.5 kg

DRUGS (13)
  1. CAPLYTA [Suspect]
     Active Substance: LUMATEPERONE
     Indication: Bipolar disorder
     Dosage: OTHER QUANTITY : 1 CAPSULE(S);?FREQUENCY : AT BEDTIME;?
     Route: 048
     Dates: start: 20220711, end: 20220801
  2. CAPLYTA [Suspect]
     Active Substance: LUMATEPERONE
     Indication: Depression
  3. LITHIUM [Concomitant]
  4. MODAFINIL [Concomitant]
  5. FENOFIBRATE [Concomitant]
  6. SIMVASTATIN [Concomitant]
  7. prilosec [Concomitant]
  8. ALFUZOSIN [Concomitant]
     Active Substance: ALFUZOSIN
  9. TYLENOL [Concomitant]
  10. Vitamin D [Concomitant]
  11. multivitamin [Concomitant]
  12. coenzyme Q [Concomitant]
  13. MAGNESIUM [Concomitant]
     Active Substance: MAGNESIUM

REACTIONS (10)
  - Fatigue [None]
  - Arthralgia [None]
  - Myalgia [None]
  - Tension headache [None]
  - Vision blurred [None]
  - Vision blurred [None]
  - Memory impairment [None]
  - Dry mouth [None]
  - Back pain [None]
  - Dysphagia [None]

NARRATIVE: CASE EVENT DATE: 20220713
